FAERS Safety Report 24148471 (Version 1)
Quarter: 2024Q3

REPORT INFORMATION
  Report Type: Spontaneous
  Country: US (occurrence: None)
  Receive Date: 20240728
  Receipt Date: 20240728
  Transmission Date: 20241017
  Serious: Yes (Disabling, Other)
  Sender: Public
  Company Number: None

PATIENT
  Age: 24 Year
  Sex: Male

DRUGS (1)
  1. LEXAPRO [Suspect]
     Active Substance: ESCITALOPRAM OXALATE
     Route: 048
     Dates: start: 20150503

REACTIONS (15)
  - Insomnia [None]
  - Akathisia [None]
  - Burning sensation [None]
  - Fear [None]
  - Mania [None]
  - Diarrhoea [None]
  - Mydriasis [None]
  - Seizure [None]
  - Intrusive thoughts [None]
  - Violence-related symptom [None]
  - Depersonalisation/derealisation disorder [None]
  - Derealisation [None]
  - Anhedonia [None]
  - Emotional disorder [None]
  - Loss of libido [None]

NARRATIVE: CASE EVENT DATE: 20150503
